FAERS Safety Report 11183672 (Version 1)
Quarter: 2015Q2

REPORT INFORMATION
  Report Type: Report from Study
  Country: TR (occurrence: TR)
  Receive Date: 20150612
  Receipt Date: 20150612
  Transmission Date: 20150821
  Serious: Yes (Other)
  Sender: FDA-Public Use
  Company Number: TR-ROCHE-1591186

PATIENT
  Age: 72 Year
  Sex: Male
  Weight: 53 kg

DRUGS (31)
  1. OBINUTUZUMAB [Suspect]
     Active Substance: OBINUTUZUMAB
     Indication: NON-HODGKIN^S LYMPHOMA
     Route: 042
     Dates: start: 20141203, end: 20141203
  2. OBINUTUZUMAB [Suspect]
     Active Substance: OBINUTUZUMAB
     Route: 042
     Dates: start: 20141210, end: 20141210
  3. OBINUTUZUMAB [Suspect]
     Active Substance: OBINUTUZUMAB
     Route: 042
     Dates: start: 20150422, end: 20150422
  4. AVELOX (TURKEY) [Concomitant]
     Indication: PNEUMONITIS
     Route: 048
     Dates: start: 20150216, end: 20150325
  5. NAC (ACETYLCYSTEINE) [Concomitant]
     Indication: PNEUMONITIS
     Route: 048
     Dates: start: 20150204, end: 20150325
  6. AVELOX (TURKEY) [Concomitant]
     Indication: PNEUMONITIS
     Route: 048
     Dates: start: 20150305, end: 20150325
  7. CATAFLAM [Concomitant]
     Active Substance: DICLOFENAC POTASSIUM
     Indication: ARTHRALGIA
     Route: 048
     Dates: start: 20150123
  8. MOXIFLOXACIN [Concomitant]
     Active Substance: MOXIFLOXACIN
     Indication: PNEUMONITIS
     Route: 048
     Dates: start: 20150204, end: 20150325
  9. OBINUTUZUMAB [Suspect]
     Active Substance: OBINUTUZUMAB
     Route: 042
     Dates: start: 20141217, end: 20141217
  10. COMBIVENT [Concomitant]
     Active Substance: ALBUTEROL SULFATE\IPRATROPIUM BROMIDE
     Indication: PNEUMONITIS
     Dosage: DOSE: NA, ROUTE: NA
     Route: 065
     Dates: start: 20150216, end: 20150325
  11. KLACID (TURKEY) [Concomitant]
     Indication: PNEUMONITIS
     Route: 048
     Dates: start: 20150305, end: 20150325
  12. DUPHALAC [Concomitant]
     Active Substance: LACTULOSE
     Indication: CONSTIPATION
     Route: 048
     Dates: start: 20150106
  13. OBINUTUZUMAB [Suspect]
     Active Substance: OBINUTUZUMAB
     Route: 042
     Dates: start: 20150225, end: 20150225
  14. RENNIE (TURKEY) [Concomitant]
     Dosage: GASTROPROTECTIVE
     Route: 048
     Dates: start: 20150312
  15. PULMICORT TURBUHALER [Concomitant]
     Active Substance: BUDESONIDE
     Dosage: ROUTE: NA, FERQUENCY: AS NEEDED
     Route: 065
     Dates: start: 20150216, end: 20150325
  16. OTRIVINE [Concomitant]
     Indication: PNEUMONITIS
     Dosage: FREQUENCY: AS NEEDED, DOSE: NA
     Route: 045
     Dates: start: 20150216, end: 20150325
  17. NASONEX [Concomitant]
     Active Substance: MOMETASONE FUROATE
     Indication: PNEUMONITIS
     Dosage: DOSE:: NA
     Route: 065
     Dates: start: 20150305
  18. LANSOR [Concomitant]
     Active Substance: LANSOPRAZOLE
     Dosage: GASTROPROTECTIVE
     Route: 048
     Dates: start: 20150106
  19. ATROVENT [Concomitant]
     Active Substance: IPRATROPIUM BROMIDE
     Indication: PNEUMONITIS
     Dosage: ROUTE: NA
     Route: 065
     Dates: start: 20150225, end: 20150325
  20. OBINUTUZUMAB [Suspect]
     Active Substance: OBINUTUZUMAB
     Route: 042
     Dates: start: 20150128, end: 20150128
  21. ANDOREX [Concomitant]
     Indication: PHARYNGITIS
     Route: 065
     Dates: start: 20150312, end: 20150325
  22. GERALGINE K [Concomitant]
     Active Substance: ACETAMINOPHEN\CAFFEINE\CODEINE PHOSPHATE
     Indication: ARTHRALGIA
     Dosage: DOSE: NA
     Route: 065
     Dates: start: 20150316
  23. AUGMENTIN (AMOXICILLIN/CLAVULANIC ACID) [Concomitant]
     Indication: PNEUMONITIS
     Route: 048
     Dates: start: 20150305, end: 20150325
  24. OBINUTUZUMAB [Suspect]
     Active Substance: OBINUTUZUMAB
     Route: 042
     Dates: start: 20141231, end: 20141231
  25. OBINUTUZUMAB [Suspect]
     Active Substance: OBINUTUZUMAB
     Route: 042
     Dates: start: 20150325, end: 20150325
  26. CONTRAMAL LP [Concomitant]
     Active Substance: TRAMADOL HYDROCHLORIDE
     Indication: ARTHRALGIA
     Route: 048
     Dates: start: 20150204
  27. ESCITALOPRAM [Concomitant]
     Active Substance: ESCITALOPRAM OXALATE
     Indication: DEPRESSION
     Route: 048
     Dates: start: 20150119
  28. NEUPOGEN [Concomitant]
     Active Substance: FILGRASTIM
     Indication: NEUTROPENIA
     Route: 058
     Dates: start: 20150109
  29. FLOMAX (TAMSULOSIN) [Concomitant]
     Indication: BENIGN PROSTATIC HYPERPLASIA
     Route: 048
     Dates: start: 20150106
  30. CARDURA [Concomitant]
     Active Substance: DOXAZOSIN MESYLATE
     Route: 048
     Dates: start: 20150325
  31. CIPRALEX [Concomitant]
     Active Substance: ESCITALOPRAM OXALATE
     Indication: DEPRESSION
     Route: 065
     Dates: start: 20150506

REACTIONS (5)
  - Constipation [Recovered/Resolved]
  - Xerophthalmia [Recovered/Resolved]
  - Pneumonitis [Recovered/Resolved]
  - Pharyngitis [Recovered/Resolved]
  - Arthralgia [Not Recovered/Not Resolved]

NARRATIVE: CASE EVENT DATE: 20150106
